FAERS Safety Report 6590318-9 (Version None)
Quarter: 2010Q1

REPORT INFORMATION
  Report Type: 
  Country: None (occurrence: None)
  Receive Date: 20100219
  Receipt Date: 20100210
  Transmission Date: 20100710
  Serious: Yes (Death, Hospitalization)
  Sender: FDA-Public Use
  Company Number: IT-ELI_LILLY_AND_COMPANY-IT200910006662

PATIENT
  Sex: Female
  Weight: 52 kg

DRUGS (7)
  1. PEMETREXED [Suspect]
     Indication: NON-SMALL CELL LUNG CANCER
     Dosage: 500 MG/M2, DAY 1 EVERY 21 DAYS
     Route: 042
     Dates: start: 20091015
  2. PEMETREXED [Suspect]
     Dosage: 675 MG, DAY 1 EVERY 21 DAYS
     Route: 042
     Dates: start: 20091123
  3. CISPLATIN [Suspect]
     Indication: NON-SMALL CELL LUNG CANCER
     Dosage: 75 MG/M2, DAY 1 EVERY 21 DAYS
     Route: 042
     Dates: start: 20091015
  4. FOLIC ACID [Concomitant]
     Indication: PROPHYLAXIS
     Dates: start: 20091009
  5. VITAMIN B-12 [Concomitant]
     Indication: PROPHYLAXIS
     Dates: start: 20091009
  6. DEXAMETHASONE [Concomitant]
     Indication: PROPHYLAXIS
     Dates: start: 20091014
  7. OXYCODONE HCL [Concomitant]
     Indication: PAIN
     Dosage: UNK, UNK
     Dates: start: 20091016

REACTIONS (2)
  - LOBAR PNEUMONIA [None]
  - RESPIRATORY FAILURE [None]
